FAERS Safety Report 26153191 (Version 1)
Quarter: 2025Q4

REPORT INFORMATION
  Report Type: Spontaneous
  Country: EU (occurrence: EU)
  Receive Date: 20251214
  Receipt Date: 20251214
  Transmission Date: 20260117
  Serious: Yes (Other)
  Sender: JOHNSON AND JOHNSON
  Company Number: None

PATIENT
  Age: 87 Year
  Sex: Female

DRUGS (9)
  1. XARELTO [Interacting]
     Active Substance: RIVAROXABAN
     Indication: Product used for unknown indication
     Dosage: 10 MG, QD
     Route: 048
  2. MICONAZOLE NITRATE [Interacting]
     Active Substance: MICONAZOLE NITRATE
     Indication: Candida infection
     Dosage: 1 DF, QD(1 VAGINAL TABLET IN THE EVENING VAGINAL USE)
     Route: 067
     Dates: start: 20251113, end: 20251114
  3. MOXONIDINE [Interacting]
     Active Substance: MOXONIDINE
     Indication: Product used for unknown indication
     Dosage: 2 0 1
     Route: 048
  4. NEBIVOLOL [Interacting]
     Active Substance: NEBIVOLOL
     Indication: Product used for unknown indication
     Dosage: 5 MG
     Route: 048
  5. VALSARTAN [Interacting]
     Active Substance: VALSARTAN
     Indication: Product used for unknown indication
     Dosage: 80 MG, QD(0 0 1)
     Route: 048
  6. URAPIDIL [Interacting]
     Active Substance: URAPIDIL
     Indication: Product used for unknown indication
     Dosage: 60 MG, QD
     Route: 048
  7. REPAGLINIDE [Interacting]
     Active Substance: REPAGLINIDE
     Indication: Product used for unknown indication
     Dosage: 3 MG, QD
     Route: 048
  8. LERCANIDIPINE HYDROCHLORIDE [Interacting]
     Active Substance: LERCANIDIPINE HYDROCHLORIDE
     Indication: Product used for unknown indication
     Dosage: 20 MG, QD(0 0 1)
     Route: 048
  9. ACEMETACIN [Interacting]
     Active Substance: ACEMETACIN
     Indication: Product used for unknown indication
     Dosage: 60 MG, BID (2*1)
     Route: 048

REACTIONS (3)
  - Blood pressure increased [Recovered/Resolved]
  - General physical health deterioration [Recovered/Resolved]
  - Drug interaction [Recovered/Resolved]

NARRATIVE: CASE EVENT DATE: 20251113
